FAERS Safety Report 15139553 (Version 4)
Quarter: 2019Q3

REPORT INFORMATION
  Report Type: Report from Study
  Country: US (occurrence: US)
  Receive Date: 20180713
  Receipt Date: 20190726
  Transmission Date: 20191004
  Serious: Yes (Hospitalization, Other)
  Sender: FDA-Public Use
  Company Number: US-ROCHE-2152635

PATIENT
  Age: 35 Year
  Sex: Female
  Weight: 103.8 kg

DRUGS (3)
  1. ATEZOLIZUMAB. [Suspect]
     Active Substance: ATEZOLIZUMAB
     Indication: BREAST CANCER
     Dosage: DATE OF MOST RECENT DOSE OF ATEZOLIZUMAB PRIOR TO EVENT ONSET: 26/FEB/2018.
     Route: 041
     Dates: start: 20180205
  2. CARBOPLATIN. [Suspect]
     Active Substance: CARBOPLATIN
     Indication: BREAST CANCER
     Dosage: DOSE: AUC 5 ON DAY 1.?DATE OF MOST RECENT DOSE OF CARBOPLATIN (725MG) PRIOR TO EVENT ONSET: 27/FEB/2
     Route: 042
     Dates: start: 20180205
  3. PACLITAXEL. [Suspect]
     Active Substance: PACLITAXEL
     Indication: BREAST CANCER
     Dosage: DATE OF MOST RECENT DOSE OF PACLITAXEL (80MG) PRIOR TO EVENT ONSET: 27/FEB/2018.
     Route: 042
     Dates: start: 20180205

REACTIONS (2)
  - Anaemia [Unknown]
  - Syncope [Recovered/Resolved]

NARRATIVE: CASE EVENT DATE: 20180303
